FAERS Safety Report 7185028-3 (Version None)
Quarter: 2010Q4

REPORT INFORMATION
  Report Type: 
  Country: None (occurrence: None)
  Receive Date: 20101222
  Receipt Date: 20101214
  Transmission Date: 20110411
  Serious: Yes (Hospitalization)
  Sender: FDA-Public Use
  Company Number: PHHO2010GB18887

PATIENT
  Sex: Female
  Weight: 71.3 kg

DRUGS (5)
  1. AFINITOR [Suspect]
     Indication: BREAST CANCER METASTATIC
     Dosage: CODE NOT BROKEN
     Route: 048
     Dates: start: 20101125, end: 20101213
  2. BLINDED NO TREATMENT RECEIVED NOMED [Suspect]
     Indication: BREAST CANCER METASTATIC
     Dosage: CODE NOT BROKEN
     Route: 048
     Dates: start: 20101125, end: 20101213
  3. BLINDED PLACEBO COMP-PLA+ [Suspect]
     Indication: BREAST CANCER METASTATIC
     Dosage: CODE NOT BROKEN
     Route: 048
     Dates: start: 20101125, end: 20101213
  4. COMPARATOR VINORELBINE [Suspect]
     Indication: BREAST CANCER METASTATIC
     Dosage: 46 MG WEEKLY
     Route: 042
     Dates: start: 20101125, end: 20101202
  5. COMPARATOR TRASTUZUMAB [Suspect]
     Indication: BREAST CANCER METASTATIC
     Dosage: 147 MG WEEKLY
     Route: 042
     Dates: start: 20101125, end: 20101209

REACTIONS (2)
  - FEBRILE NEUTROPENIA [None]
  - INFLUENZA LIKE ILLNESS [None]
